FAERS Safety Report 5452545-3 (Version None)
Quarter: 2007Q3

REPORT INFORMATION
  Report Type: 
  Country: None (occurrence: None)
  Receive Date: 20070914
  Receipt Date: 20070911
  Transmission Date: 20080115
  Serious: Yes (Life-Threatening, Hospitalization, Other)
  Sender: FDA-Public Use
  Company Number: US-BAYER-200710807BWH

PATIENT
  Age: 84 Year
  Sex: Male
  Weight: 68 kg

DRUGS (15)
  1. SORAFENIB [Suspect]
     Indication: NON-SMALL CELL LUNG CANCER STAGE IV
     Dosage: TOTAL DAILY DOSE: 800 MG  UNIT DOSE: 200 MG
     Route: 048
     Dates: start: 20061216, end: 20070105
  2. SORAFENIB [Suspect]
     Dosage: TOTAL DAILY DOSE: 800 MG  UNIT DOSE: 200 MG
     Route: 048
     Dates: start: 20070106, end: 20070124
  3. SORAFENIB [Suspect]
     Dosage: TOTAL DAILY DOSE: 800 MG  UNIT DOSE: 200 MG
     Route: 048
     Dates: start: 20070322, end: 20070427
  4. SORAFENIB [Suspect]
     Dosage: TOTAL DAILY DOSE: 800 MG  UNIT DOSE: 200 MG
     Route: 048
     Dates: start: 20070127, end: 20070214
  5. SORAFENIB [Suspect]
     Dosage: TOTAL DAILY DOSE: 800 MG  UNIT DOSE: 200 MG
     Route: 048
     Dates: start: 20070217, end: 20070306
  6. CARBOPLATIN [Suspect]
     Indication: NON-SMALL CELL LUNG CANCER STAGE IV
     Route: 042
     Dates: start: 20070105, end: 20070105
  7. CARBOPLATIN [Suspect]
     Route: 042
     Dates: start: 20070216, end: 20070216
  8. CARBOPLATIN [Suspect]
     Route: 042
     Dates: start: 20070321, end: 20070411
  9. CARBOPLATIN [Suspect]
     Route: 042
     Dates: start: 20070126, end: 20070126
  10. CARBOPLATIN [Suspect]
     Route: 042
     Dates: start: 20061215, end: 20061215
  11. PACLITAXEL [Suspect]
     Indication: NON-SMALL CELL LUNG CANCER STAGE IV
     Route: 042
     Dates: start: 20061215, end: 20061215
  12. PACLITAXEL [Suspect]
     Route: 042
     Dates: start: 20070105, end: 20070105
  13. TENORMIN [Concomitant]
     Indication: HYPERTENSION
     Dosage: TOTAL DAILY DOSE: 50 MG
     Route: 048
  14. ASPIRIN [Concomitant]
     Indication: HYPERTENSION
     Route: 048
  15. MAGNESIUM OXIDE [Concomitant]
     Indication: HYPOMAGNESAEMIA
     Route: 048
     Dates: start: 20070228

REACTIONS (3)
  - DEEP VEIN THROMBOSIS [None]
  - PANCYTOPENIA [None]
  - PULMONARY EMBOLISM [None]
